FAERS Safety Report 4425045-7 (Version None)
Quarter: 2004Q3

REPORT INFORMATION
  Report Type: 
  Country: None (occurrence: None)
  Receive Date: 20040813
  Receipt Date: 20040427
  Transmission Date: 20050211
  Serious: Yes (Other)
  Sender: FDA-Public Use
  Company Number: PHNU2004DE01649

PATIENT
  Age: 67 Year
  Sex: Male

DRUGS (2)
  1. CO-DIOVAN FORTE [Suspect]
     Indication: HYPERTENSION
     Dosage: UNK, UNK
     Route: 048
     Dates: start: 20040315, end: 20040401
  2. ASPIRIN [Suspect]
     Dosage: 1 DF, BID

REACTIONS (1)
  - RECTAL HAEMORRHAGE [None]
